FAERS Safety Report 22256700 (Version 1)
Quarter: 2023Q2

REPORT INFORMATION
  Report Type: Report from Study
  Country: US (occurrence: US)
  Receive Date: 20230426
  Receipt Date: 20230426
  Transmission Date: 20230722
  Serious: Yes (Disabling, Other)
  Sender: FDA-Public Use
  Company Number: US-HORIZON THERAPEUTICS-HZN-2021-002997

PATIENT

DRUGS (23)
  1. TEPEZZA [Suspect]
     Active Substance: TEPROTUMUMAB-TRBW
     Indication: Endocrine ophthalmopathy
     Dosage: 830 MG, EVERY 3 WEEKS
     Route: 042
     Dates: start: 20210601
  2. TEPEZZA [Suspect]
     Active Substance: TEPROTUMUMAB-TRBW
     Dosage: 1660 MG,EVERY 3 WEEKS
     Route: 042
  3. TEPEZZA [Suspect]
     Active Substance: TEPROTUMUMAB-TRBW
     Dosage: 1660 MG,EVERY 3 WEEKS
     Route: 042
  4. TEPEZZA [Suspect]
     Active Substance: TEPROTUMUMAB-TRBW
     Dosage: 1660 MG,EVERY 3 WEEKS
     Route: 042
  5. TEPEZZA [Suspect]
     Active Substance: TEPROTUMUMAB-TRBW
     Dosage: FIRST ROUND LAST INFUSION 1660 MG,EVERY 3 WEEKS
     Route: 042
     Dates: start: 20211028
  6. TEPEZZA [Suspect]
     Active Substance: TEPROTUMUMAB-TRBW
     Dosage: 2ND ROUND FIRST INFUSION EVERY 3 WEEKS, 820 MG FOR 1 THEN  1640MG FOR 7
     Route: 042
     Dates: start: 20220512
  7. TEPEZZA [Suspect]
     Active Substance: TEPROTUMUMAB-TRBW
     Dosage: 2ND ROUND THIRD INFUSION1640 MG, EVERY 3 WEEKS
     Route: 042
     Dates: start: 20220623
  8. TEPEZZA [Suspect]
     Active Substance: TEPROTUMUMAB-TRBW
     Dosage: 1640 MG, EVERY 3 WEEKS
     Route: 042
     Dates: start: 20220714
  9. TEPEZZA [Suspect]
     Active Substance: TEPROTUMUMAB-TRBW
     Dosage: 1640 MG (IV EVERY 21 DAYS, LAST INFUSION)
     Route: 042
     Dates: start: 20220825, end: 20220825
  10. TEPEZZA [Suspect]
     Active Substance: TEPROTUMUMAB-TRBW
     Dosage: 1640 MG, EVERY 3 WEEKS (V EVERY 21 DAYS, LAST INFUSION)
     Route: 042
     Dates: start: 20221006
  11. ASCORBIC ACID [Concomitant]
     Active Substance: ASCORBIC ACID
     Indication: Product used for unknown indication
     Route: 065
  12. CALCIUM [Concomitant]
     Active Substance: CALCIUM
     Indication: Product used for unknown indication
     Route: 065
  13. PREDNISONE [Concomitant]
     Active Substance: PREDNISONE
     Indication: Product used for unknown indication
     Route: 065
  14. SYNTHROID [Concomitant]
     Active Substance: LEVOTHYROXINE SODIUM
     Indication: Product used for unknown indication
     Route: 065
  15. Womens 50 plus multivits [Concomitant]
     Indication: Product used for unknown indication
     Route: 065
  16. METHOTREXATE SODIUM [Concomitant]
     Active Substance: METHOTREXATE SODIUM
     Indication: Product used for unknown indication
  17. RISEDRONATE SODIUM [Concomitant]
     Active Substance: RISEDRONATE SODIUM
  18. FOLIC ACID [Concomitant]
     Active Substance: FOLIC ACID
  19. FISH OIL [Concomitant]
     Active Substance: FISH OIL
  20. MAGNESIUM [Concomitant]
     Active Substance: MAGNESIUM
  21. VITAMIN D3 [Concomitant]
     Active Substance: CHOLECALCIFEROL
  22. Centrum Adult [Concomitant]
  23. ARTIFICIAL TEARS [Concomitant]

REACTIONS (28)
  - Physical disability [Not Recovered/Not Resolved]
  - Deafness permanent [Not Recovered/Not Resolved]
  - Disability [Not Recovered/Not Resolved]
  - Haematochezia [Not Recovered/Not Resolved]
  - Onychoclasis [Unknown]
  - Ear pain [Unknown]
  - Pain [Not Recovered/Not Resolved]
  - Defaecation urgency [Unknown]
  - Dizziness [Not Recovered/Not Resolved]
  - Nail disorder [Unknown]
  - Myalgia [Not Recovered/Not Resolved]
  - Hypogeusia [Unknown]
  - Injury [Not Recovered/Not Resolved]
  - Anxiety [Not Recovered/Not Resolved]
  - Emotional distress [Not Recovered/Not Resolved]
  - Discomfort [Not Recovered/Not Resolved]
  - Condition aggravated [Not Recovered/Not Resolved]
  - Impaired quality of life [Not Recovered/Not Resolved]
  - Economic problem [Not Recovered/Not Resolved]
  - Product quality issue [Unknown]
  - Headache [Not Recovered/Not Resolved]
  - Alopecia [Unknown]
  - Muscle spasms [Unknown]
  - Diarrhoea [Unknown]
  - Nausea [Not Recovered/Not Resolved]
  - Fatigue [Unknown]
  - Tinnitus [Unknown]
  - Off label use [Unknown]

NARRATIVE: CASE EVENT DATE: 20210601
